FAERS Safety Report 9460801 (Version 2)
Quarter: 2013Q3

REPORT INFORMATION
  Report Type: Spontaneous
  Country: US (occurrence: US)
  Receive Date: 20130815
  Receipt Date: 20130903
  Transmission Date: 20140515
  Serious: Yes (Other)
  Sender: FDA-Public Use
  Company Number: US-009507513-1308USA005421

PATIENT
  Age: 67 Year
  Sex: Male
  Weight: 92.9 kg

DRUGS (6)
  1. SYLATRON [Suspect]
     Indication: MALIGNANT MELANOMA
     Dosage: 300 MG, QW, EVERY FRIDAY
     Route: 058
     Dates: start: 20130405, end: 20130802
  2. ASPIR LOW [Concomitant]
  3. TYLENOL EXTRA STRENGTH [Concomitant]
  4. GRANISETRON [Concomitant]
  5. LIDOCAINE (+) PRILOCAINE [Concomitant]
  6. MECLIZINE [Concomitant]

REACTIONS (5)
  - Dyspnoea [Recovered/Resolved]
  - Lung disorder [Unknown]
  - Metastasis [Unknown]
  - Fatigue [Recovering/Resolving]
  - Asthenia [Unknown]
